FAERS Safety Report 16461127 (Version 2)
Quarter: 2020Q1

REPORT INFORMATION
  Report Type: Spontaneous
  Country: JP (occurrence: JP)
  Receive Date: 20190620
  Receipt Date: 20200110
  Transmission Date: 20200409
  Serious: Yes (Hospitalization, Other)
  Sender: FDA-Public Use
  Company Number: JP-ALLERGAN-1925460US

PATIENT

DRUGS (11)
  1. BOTOX [Suspect]
     Active Substance: ONABOTULINUMTOXINA
     Dosage: 360 UNITS, SINGLE
     Route: 030
     Dates: start: 2015, end: 2015
  2. TIAPRIDE HYDROCHLORIDE [Suspect]
     Active Substance: TIAPRIDE HYDROCHLORIDE
     Indication: PRODUCT USED FOR UNKNOWN INDICATION
     Dosage: UNK
     Route: 048
     Dates: end: 20150819
  3. BOTOX [Suspect]
     Active Substance: ONABOTULINUMTOXINA
     Indication: MUSCLE SPASMS
     Dosage: 360 UNITS, QD
     Route: 030
     Dates: start: 20181010, end: 20181010
  4. MAGNESIUM OXIDE. [Concomitant]
     Active Substance: MAGNESIUM OXIDE
     Dosage: 1 G, BID
     Dates: start: 2016
  5. BOTOX [Suspect]
     Active Substance: ONABOTULINUMTOXINA
     Dosage: UNK UNK, SINGLE
     Route: 030
     Dates: start: 2011, end: 2011
  6. MOSAPRIDE CITRATE [Concomitant]
     Active Substance: MOSAPRIDE CITRATE
     Indication: DEFAECATION DISORDER
     Dosage: UNK
     Dates: end: 2015
  7. DEPAKENE [Concomitant]
     Active Substance: VALPROIC ACID
     Indication: SEIZURE
     Dosage: UNK
     Route: 048
     Dates: end: 20160106
  8. TIZANIDINE HYDROCHLORIDE. [Suspect]
     Active Substance: TIZANIDINE HYDROCHLORIDE
     Indication: PRODUCT USED FOR UNKNOWN INDICATION
     Dosage: UNK
     Route: 048
     Dates: end: 20150819
  9. LAC-B [Concomitant]
     Active Substance: BIFIDOBACTERIUM SPP.
     Indication: DEFAECATION DISORDER
     Dosage: UNK
     Dates: end: 2015
  10. CEFMETAZON [Suspect]
     Active Substance: CEFMETAZOLE SODIUM
     Indication: SEPSIS
     Dosage: 1 G, BID
     Route: 030
     Dates: start: 20181019
  11. PANTETHIN [Concomitant]
     Dosage: 1.5 G, TID
     Dates: end: 2015

REACTIONS (20)
  - Hypernatraemia [Recovered/Resolved]
  - Muscle spasms [Recovering/Resolving]
  - Mood altered [Unknown]
  - Rhabdomyolysis [Recovered/Resolved]
  - Condition aggravated [Recovering/Resolving]
  - Mental impairment [Unknown]
  - Pyrexia [Recovered/Resolved]
  - Selective eating disorder [Unknown]
  - Acute kidney injury [Recovered/Resolved]
  - Myoglobinuria [Recovered/Resolved]
  - Pain [Recovering/Resolving]
  - Device related infection [Recovering/Resolving]
  - Diarrhoea [Unknown]
  - Heparin-induced thrombocytopenia [Recovering/Resolving]
  - Hypercreatininaemia [Recovered/Resolved]
  - Muscle tightness [Unknown]
  - Sepsis [Recovered/Resolved]
  - Anuria [Recovered/Resolved]
  - Shock [Recovered/Resolved]
  - Abnormal behaviour [Recovering/Resolving]

NARRATIVE: CASE EVENT DATE: 2015
